FAERS Safety Report 7708107-8 (Version None)
Quarter: 2011Q3

REPORT INFORMATION
  Report Type: 
  Country: None (occurrence: None)
  Receive Date: 20110825
  Receipt Date: 20110816
  Transmission Date: 20111222
  Serious: Yes (Hospitalization)
  Sender: FDA-Public Use
  Company Number: US-BIOGENIDEC-2011BI022607

PATIENT
  Age: 72 Year
  Sex: Female

DRUGS (2)
  1. AVONEX [Suspect]
     Indication: MULTIPLE SCLEROSIS
     Route: 030
     Dates: start: 20030101
  2. AVONEX [Suspect]
     Route: 030
     Dates: start: 19991101, end: 20030101

REACTIONS (5)
  - ARTHRITIS INFECTIVE [None]
  - HIP FRACTURE [None]
  - INFLUENZA LIKE ILLNESS [None]
  - FALL [None]
  - URINARY TRACT INFECTION [None]
